FAERS Safety Report 6553230-7 (Version None)
Quarter: 2010Q1

REPORT INFORMATION
  Report Type: 
  Country: None (occurrence: None)
  Receive Date: 20100127
  Receipt Date: 20090527
  Transmission Date: 20100710
  Serious: No
  Sender: FDA-Public Use
  Company Number: A0778108A

PATIENT
  Age: 57 Year
  Sex: Female

DRUGS (3)
  1. IMITREX [Suspect]
     Indication: MIGRAINE
     Route: 045
     Dates: start: 20060101
  2. PREMARIN [Concomitant]
  3. SERZONE [Concomitant]

REACTIONS (5)
  - DYSGEUSIA [None]
  - HYPOAESTHESIA ORAL [None]
  - NASAL DISCOMFORT [None]
  - PRODUCT QUALITY ISSUE [None]
  - THERMAL BURN [None]
